FAERS Safety Report 6003489-X (Version None)
Quarter: 2008Q4

REPORT INFORMATION
  Report Type: 
  Country: None (occurrence: None)
  Receive Date: 20081216
  Receipt Date: 20081211
  Transmission Date: 20090506
  Serious: Yes (Hospitalization, Other)
  Sender: FDA-Public Use
  Company Number: DK-BRISTOL-MYERS SQUIBB COMPANY-14291462

PATIENT
  Age: 34 Year
  Sex: Male
  Weight: 76 kg

DRUGS (3)
  1. ETOPOSIDE [Suspect]
     Indication: GERM CELL CANCER
     Dosage: FIRST ADMIN DATE 08FEB2008,CUMULATIVE DOSE 3960MG. CYCLE 4 WAS GIVEN FROM 17APR08-02MAY08
     Route: 042
     Dates: start: 20080502, end: 20080502
  2. CISPLATIN [Suspect]
     Indication: GERM CELL CANCER
     Dosage: FIRST ADMIN DATE 08FEB2008,CUMULATIVE DOSE 794.8MG. CYCLE 4 WAS GIVEN FROM 17APR08-02MAY08
     Route: 042
     Dates: start: 20080502, end: 20080502
  3. BLEOMYCIN SULFATE [Suspect]
     Indication: GERM CELL CANCER
     Dosage: FIRST ADMIN DATE 09FEB2008,CUMULATIVE DOSE 330MG. CYCLE 4 WAS GIVEN FROM 17APR08-02MAY08
     Route: 042
     Dates: start: 20080502, end: 20080502

REACTIONS (2)
  - BLOOD CREATININE INCREASED [None]
  - DEEP VEIN THROMBOSIS [None]
